FAERS Safety Report 16740644 (Version 1)
Quarter: 2019Q4

REPORT INFORMATION
  Report Type: Spontaneous
  Country: US (occurrence: US)
  Receive Date: 20190824
  Receipt Date: 20190824
  Transmission Date: 20200122
  Serious: Yes (Other)
  Sender: FDA-Public Use
  Company Number: None

PATIENT
  Age: 28 Year
  Sex: Female
  Weight: 85.5 kg

DRUGS (5)
  1. VITAMIN D [Concomitant]
     Active Substance: VITAMIN D NOS
  2. FISH OIL [Concomitant]
     Active Substance: FISH OIL
  3. ORTHO TRI CYCLEN LO [Concomitant]
     Active Substance: ETHINYL ESTRADIOL\NORGESTIMATE
  4. MULTIVITAMINS [Concomitant]
     Active Substance: VITAMINS
  5. CYMBALTA [Suspect]
     Active Substance: DULOXETINE HYDROCHLORIDE
     Indication: ARTHRALGIA
     Dosage: ?          QUANTITY:1 CAPSULE(S);?
     Route: 048
     Dates: start: 20170804, end: 20190822

REACTIONS (10)
  - Drug withdrawal syndrome [None]
  - Vertigo [None]
  - Dysstasia [None]
  - Diarrhoea [None]
  - Hyperhidrosis [None]
  - Product use complaint [None]
  - Loss of personal independence in daily activities [None]
  - Mood swings [None]
  - Suicidal ideation [None]
  - Nausea [None]

NARRATIVE: CASE EVENT DATE: 20190824
